FAERS Safety Report 23366047 (Version 1)
Quarter: 2024Q1

REPORT INFORMATION
  Report Type: Spontaneous
  Country: US (occurrence: None)
  Receive Date: 20240103
  Receipt Date: 20240103
  Transmission Date: 20240409
  Serious: Yes (Other)
  Sender: FDA-Public Use
  Company Number: None

PATIENT
  Sex: Female

DRUGS (1)
  1. ORENCIA [Suspect]
     Active Substance: ABATACEPT
     Indication: Rheumatoid arthritis
     Dosage: 125 MG/ML SUBCUTANEOUS??INJECT 1 PEN SUBCUTANEOUSLY ONCE WEEKLY
     Route: 058
     Dates: start: 20220707

REACTIONS (2)
  - Pain [None]
  - Loss of personal independence in daily activities [None]
